FAERS Safety Report 8234617-3 (Version None)
Quarter: 2012Q1

REPORT INFORMATION
  Report Type: 
  Country: None (occurrence: None)
  Receive Date: 20120323
  Receipt Date: 20120308
  Transmission Date: 20120608
  Serious: Yes (Other)
  Sender: FDA-Public Use
  Company Number: 2012SP013378

PATIENT

DRUGS (1)
  1. TEMODAL [Suspect]
     Indication: MALIGNANT GLIOMA
     Dosage: 150 MG/M2; PO
     Route: 048

REACTIONS (2)
  - ENCEPHALITIS HERPES [None]
  - INFLUENZA [None]
